FAERS Safety Report 14287713 (Version 1)
Quarter: 2017Q4

REPORT INFORMATION
  Report Type: Spontaneous
  Country: DE (occurrence: DE)
  Receive Date: 20171214
  Receipt Date: 20171214
  Transmission Date: 20180321
  Serious: Yes (Other)
  Sender: FDA-Public Use
  Company Number: DE-MYLANLABS-2017M1078171

PATIENT
  Age: 75 Year
  Sex: Male

DRUGS (2)
  1. ARSENIC TRIOXIDE [Suspect]
     Active Substance: ARSENIC TRIOXIDE
     Indication: ACUTE PROMYELOCYTIC LEUKAEMIA
     Dosage: UNK
  2. TRETINOIN. [Suspect]
     Active Substance: TRETINOIN
     Indication: ACUTE PROMYELOCYTIC LEUKAEMIA
     Dosage: UNK

REACTIONS (6)
  - Acute kidney injury [Unknown]
  - Herpes zoster [Unknown]
  - Acute promyelocytic leukaemia differentiation syndrome [Recovered/Resolved]
  - Blood lactate dehydrogenase increased [Unknown]
  - Electrocardiogram QT prolonged [Unknown]
  - White blood cell count increased [Unknown]
